FAERS Safety Report 9047125 (Version 1)
Quarter: 2013Q1

REPORT INFORMATION
  Report Type: Report from Study
  Country: US (occurrence: US)
  Receive Date: 20130130
  Receipt Date: 20130130
  Transmission Date: 20140127
  Serious: No
  Sender: FDA-Public Use
  Company Number: US-ABBOTT-12P-163-0976379-00

PATIENT
  Age: 39 Year
  Sex: Female

DRUGS (7)
  1. HUMIRA [Suspect]
     Indication: RHEUMATOID ARTHRITIS
     Dates: start: 20120711
  2. ARAVA [Concomitant]
     Indication: RHEUMATOID ARTHRITIS
  3. VICODIN [Concomitant]
     Indication: PAIN
  4. ATENOLOL [Concomitant]
     Indication: HYPERTENSION
  5. PRILOSEC [Concomitant]
     Indication: DYSPEPSIA
  6. ESTRADIOL [Concomitant]
     Indication: HYSTERECTOMY
     Dosage: DAILY
  7. HYDROCHLORIZIDE [Concomitant]
     Indication: FLUID RETENTION
     Dosage: PRESCRIBED ONCE/DAY BUT TAKES IT AS REQUIRED

REACTIONS (6)
  - Skin exfoliation [Not Recovered/Not Resolved]
  - Rash pruritic [Not Recovered/Not Resolved]
  - Rash pruritic [Not Recovered/Not Resolved]
  - Skin exfoliation [Not Recovered/Not Resolved]
  - Erythema [Not Recovered/Not Resolved]
  - Erythema [Not Recovered/Not Resolved]
